FAERS Safety Report 9735884 (Version 1)
Quarter: 2013Q4

REPORT INFORMATION
  Report Type: Spontaneous
  Country: US (occurrence: US)
  Receive Date: 20131206
  Receipt Date: 20131206
  Transmission Date: 20140711
  Serious: No
  Sender: FDA-Public Use
  Company Number: US-GILEAD-2009-0024264

PATIENT
  Sex: Female
  Weight: 131.54 kg

DRUGS (13)
  1. LETAIRIS [Suspect]
     Indication: PULMONARY ARTERIAL HYPERTENSION
     Route: 048
     Dates: start: 20081009
  2. REVATIO [Concomitant]
  3. COUMADIN [Concomitant]
  4. OXYGEN [Concomitant]
  5. ALBUTEROL [Concomitant]
  6. SPIRONOLACTONE [Concomitant]
  7. POTASSIUM [Concomitant]
  8. TORSEMIDE [Concomitant]
  9. LORAZEPAM [Concomitant]
  10. PRILOSEC [Concomitant]
  11. LEXAPRO [Concomitant]
  12. ZETIA [Concomitant]
  13. ASMANEX [Concomitant]

REACTIONS (6)
  - Diarrhoea [Unknown]
  - Headache [Unknown]
  - Oedema peripheral [Unknown]
  - Constipation [Unknown]
  - Palpitations [Unknown]
  - Hot flush [Unknown]
